FAERS Safety Report 4431774-1 (Version None)
Quarter: 2004Q3

REPORT INFORMATION
  Report Type: 
  Country: None (occurrence: None)
  Receive Date: 20040818
  Receipt Date: 20040809
  Transmission Date: 20050211
  Serious: Yes (Disabling)
  Sender: FDA-Public Use
  Company Number: 2004S1000003

PATIENT
  Age: 42 Year
  Sex: Male
  Weight: 88.4514 kg

DRUGS (6)
  1. DELATESTRYL [Suspect]
     Indication: BLOOD CALCIUM DECREASED
     Dosage: SEE IMAGE
     Route: 030
     Dates: end: 20031201
  2. DELATESTRYL [Suspect]
     Indication: BLOOD TESTOSTERONE DECREASED
     Dosage: SEE IMAGE
     Route: 030
     Dates: end: 20031201
  3. DELATESTRYL [Suspect]
     Indication: BLOOD CALCIUM DECREASED
     Dosage: SEE IMAGE
     Route: 030
     Dates: start: 20040101, end: 20040801
  4. DELATESTRYL [Suspect]
     Indication: BLOOD TESTOSTERONE DECREASED
     Dosage: SEE IMAGE
     Route: 030
     Dates: start: 20040101, end: 20040801
  5. ANTIVIRAL DRUGS [Concomitant]
  6. OXYCONTIN [Concomitant]

REACTIONS (10)
  - ABASIA [None]
  - BACK PAIN [None]
  - DRUG INEFFECTIVE [None]
  - ERECTILE DYSFUNCTION [None]
  - HAEMANGIOMA [None]
  - HERPES ZOSTER [None]
  - INJECTION SITE PAIN [None]
  - INTERVERTEBRAL DISC DISORDER [None]
  - MOBILITY DECREASED [None]
  - PAIN [None]
